FAERS Safety Report 7765028-2 (Version None)
Quarter: 2011Q3

REPORT INFORMATION
  Report Type: 
  Country: None (occurrence: None)
  Receive Date: 20110921
  Receipt Date: 20110915
  Transmission Date: 20111222
  Serious: No
  Sender: FDA-Public Use
  Company Number: US-PFIZER INC-2011219536

PATIENT
  Sex: Female

DRUGS (3)
  1. AROMASIN [Suspect]
     Indication: BREAST CANCER FEMALE
     Dosage: UNK
  2. ANASTROZOLE [Concomitant]
  3. GABAPENTIN [Concomitant]
     Dosage: UNK

REACTIONS (1)
  - ALOPECIA [None]
